FAERS Safety Report 6573296-8 (Version None)
Quarter: 2010Q1

REPORT INFORMATION
  Report Type: 
  Country: None (occurrence: None)
  Receive Date: 20100203
  Receipt Date: 20100203
  Transmission Date: 20100710
  Serious: No
  Sender: FDA-Public Use
  Company Number: None

PATIENT
  Sex: Female
  Weight: 61.2356 kg

DRUGS (1)
  1. ARMOUR THYROID 120 MG FORREST LAB [Suspect]
     Indication: HYPOTHYROIDISM
     Dosage: 135 MG 1 X DAY PO
     Route: 048
     Dates: start: 20030101

REACTIONS (2)
  - DRUG EFFECT DECREASED [None]
  - PRODUCT FORMULATION ISSUE [None]
